FAERS Safety Report 24527271 (Version 1)
Quarter: 2024Q4

REPORT INFORMATION
  Report Type: Report from Study
  Country: CA (occurrence: CA)
  Receive Date: 20241021
  Receipt Date: 20241021
  Transmission Date: 20250115
  Serious: No
  Sender: ROCHE
  Company Number: CA-ROCHE-3353663

PATIENT
  Age: 35 Year
  Sex: Male

DRUGS (4)
  1. COTELLIC [Suspect]
     Active Substance: COBIMETINIB
     Indication: Erdheim-Chester disease
     Route: 048
     Dates: start: 20230413
  2. CORTISONE [Concomitant]
     Active Substance: CORTISONE
  3. DESMOPRESSIN [Concomitant]
     Active Substance: DESMOPRESSIN
  4. IMURAN [Concomitant]
     Active Substance: AZATHIOPRINE

REACTIONS (3)
  - Off label use [Unknown]
  - Gastrointestinal disorder [Recovered/Resolved]
  - Semen analysis abnormal [Unknown]

NARRATIVE: CASE EVENT DATE: 20240101
